FAERS Safety Report 6478839-0 (Version None)
Quarter: 2009Q4

REPORT INFORMATION
  Report Type: 
  Country: None (occurrence: None)
  Receive Date: 20091207
  Receipt Date: 20091204
  Transmission Date: 20100525
  Serious: Yes (Death, Life-Threatening, Hospitalization)
  Sender: FDA-Public Use
  Company Number: ES-WYE-G03442509

PATIENT
  Age: 55 Year
  Sex: Male
  Weight: 68 kg

DRUGS (6)
  1. GEMTUZUMAB OZOGAMICIN [Suspect]
     Indication: ACUTE MYELOID LEUKAEMIA
     Dosage: UNKNOWN
     Route: 042
     Dates: start: 20090110, end: 20090116
  2. GEMTUZUMAB OZOGAMICIN [Suspect]
     Route: 042
     Dates: start: 20090320, end: 20090320
  3. CYTARABINE [Suspect]
     Indication: ACUTE MYELOID LEUKAEMIA
     Dosage: UNKNOWN
     Route: 042
     Dates: start: 20090110, end: 20090116
  4. CYTARABINE [Suspect]
     Route: 042
     Dates: start: 20090320, end: 20090326
  5. IDARUBICIN HCL [Suspect]
     Indication: ACUTE MYELOID LEUKAEMIA
     Dosage: UNKNOWN
     Route: 042
     Dates: start: 20090110, end: 20090116
  6. IDARUBICIN HCL [Suspect]
     Route: 042
     Dates: start: 20090321, end: 20090323

REACTIONS (3)
  - ACUTE HEPATIC FAILURE [None]
  - HEPATOTOXICITY [None]
  - RENAL FAILURE [None]
